FAERS Safety Report 24339816 (Version 1)
Quarter: 2024Q3

REPORT INFORMATION
  Report Type: Spontaneous
  Country: US (occurrence: US)
  Receive Date: 20240919
  Receipt Date: 20240919
  Transmission Date: 20241017
  Serious: No
  Sender: PFIZER
  Company Number: US-PFIZER INC-202400259099

PATIENT

DRUGS (1)
  1. PAXLOVID [Suspect]
     Active Substance: NIRMATRELVIR\RITONAVIR
     Dosage: UNK
     Dates: start: 20240916

REACTIONS (3)
  - Nausea [Unknown]
  - Appetite disorder [Unknown]
  - Malaise [Unknown]

NARRATIVE: CASE EVENT DATE: 20240901
